FAERS Safety Report 4623452-0 (Version None)
Quarter: 2005Q1

REPORT INFORMATION
  Report Type: 
  Country: None (occurrence: None)
  Receive Date: 20050330
  Receipt Date: 20050317
  Transmission Date: 20050727
  Serious: Yes (Hospitalization)
  Sender: FDA-Public Use
  Company Number: 2005047541

PATIENT
  Age: 33 Year
  Sex: Male
  Weight: 72 kg

DRUGS (5)
  1. MEDROL [Suspect]
     Indication: INTRACRANIAL PRESSURE INCREASED
     Dosage: 200 MG (100 MG, 2 IN 1 D), ORAL
     Route: 048
     Dates: start: 20040929, end: 20041130
  2. TEMOZOLOMIDE (TEMOZOLOMIDE) [Suspect]
     Indication: ILL-DEFINED DISORDER
     Dosage: 140 MG (1 IN 1 D), INTRAVENOUS
     Route: 042
     Dates: start: 20040929, end: 20041110
  3. ERGENYL CHRONO (VALPROATE SODIUM, VALPROIC ACID) [Concomitant]
  4. ALPRAZOLAM [Concomitant]
  5. PAROXETINE HCL [Concomitant]

REACTIONS (4)
  - GENERAL PHYSICAL CONDITION ABNORMAL [None]
  - PNEUMOCYSTIS JIROVECI INFECTION [None]
  - PYREXIA [None]
  - UNEVALUABLE EVENT [None]
